FAERS Safety Report 9259084 (Version 1)
Quarter: 2013Q2

REPORT INFORMATION
  Report Type: Report from Study
  Country: US (occurrence: US)
  Receive Date: 20130426
  Receipt Date: 20130426
  Transmission Date: 20140414
  Serious: Yes (Hospitalization, Other)
  Sender: FDA-Public Use
  Company Number: US-BRISTOL-MYERS SQUIBB COMPANY-17258492

PATIENT
  Age: 70 Year
  Sex: Male
  Weight: 83.9 kg

DRUGS (17)
  1. BELATACEPT [Suspect]
     Indication: RENAL TRANSPLANT
     Dosage: 29DEC2012, 14JAN13,8FEB13,10MAR13
     Route: 042
     Dates: start: 20121221
  2. CELLCEPT [Suspect]
     Indication: RENAL TRANSPLANT
     Dates: start: 20121224
  3. ZYLOPRIM [Concomitant]
  4. LIPITOR [Concomitant]
  5. ACETYLSALICYLIC ACID [Concomitant]
  6. COLACE [Concomitant]
  7. MVI [Concomitant]
  8. NYSTATIN [Concomitant]
     Dosage: ALSO 15ML QD
  9. ZOFRAN [Concomitant]
  10. JANUVIA [Concomitant]
  11. BACTRIM [Concomitant]
     Dosage: 1 DF:400-80MG QOD
     Dates: start: 20121221
  12. IRON [Concomitant]
     Dosage: 65 FE
  13. PRILOSEC [Concomitant]
     Dates: start: 20121002
  14. VALCYTE [Concomitant]
     Dates: start: 20121221
  15. FERROUS SULFATE [Concomitant]
     Dates: start: 20121224
  16. TYLENOL PM [Concomitant]
     Dosage: 1DF:1 TABS
  17. FLOMAX [Concomitant]
     Route: 048

REACTIONS (5)
  - Pneumonia [Unknown]
  - Renal tubular necrosis [Unknown]
  - Dyspnoea [Unknown]
  - Oedema [Unknown]
  - Weight increased [Unknown]
